FAERS Safety Report 12246553 (Version 1)
Quarter: 2016Q2

REPORT INFORMATION
  Report Type: Spontaneous
  Country: CN (occurrence: CN)
  Receive Date: 20160407
  Receipt Date: 20160407
  Transmission Date: 20160815
  Serious: Yes (Other)
  Sender: FDA-Public Use
  Company Number: CN-ASTRAZENECA-2016SE05520

PATIENT
  Age: 60 Year
  Sex: Female

DRUGS (11)
  1. FASLODEX [Suspect]
     Active Substance: FULVESTRANT
     Indication: BREAST CANCER
     Route: 030
     Dates: start: 20151225
  2. VITAMINS C1 [Concomitant]
     Indication: ADJUVANT THERAPY
  3. BETALOC [Suspect]
     Active Substance: METOPROLOL TARTRATE
     Indication: HYPERTENSION
     Route: 048
  4. NOVOLIN INSULIN [Concomitant]
     Indication: DIABETES MELLITUS
     Dates: start: 1998
  5. FASLODEX [Suspect]
     Active Substance: FULVESTRANT
     Indication: METASTASES TO LUNG
     Route: 030
     Dates: start: 20151225
  6. ADALAT [Concomitant]
     Active Substance: NIFEDIPINE
     Indication: HYPERTENSION
     Dates: start: 2006
  7. FENOFIBRATE. [Concomitant]
     Active Substance: FENOFIBRATE
     Indication: BLOOD TRIGLYCERIDES INCREASED
  8. ACARBOSE. [Concomitant]
     Active Substance: ACARBOSE
     Indication: DIABETES MELLITUS
     Dates: start: 2014
  9. FASLODEX [Suspect]
     Active Substance: FULVESTRANT
     Indication: METASTASIS
     Route: 030
     Dates: start: 20151225
  10. NOVOLIN INSULIN [Concomitant]
     Indication: DIABETES MELLITUS
     Dosage: 23 U IN MORNING AND AT NIGHT, 10 U AT NOON WHEN BLOOD SUGAR WAS ABOVE 10MMOL/L
  11. GLUCUROLACTONE [Concomitant]
     Active Substance: GLUCUROLACTONE

REACTIONS (4)
  - Breast cancer metastatic [Unknown]
  - Blood pressure fluctuation [Unknown]
  - Disease progression [Unknown]
  - Blood glucose increased [Unknown]

NARRATIVE: CASE EVENT DATE: 20160115
